FAERS Safety Report 7360686-9 (Version None)
Quarter: 2011Q1

REPORT INFORMATION
  Report Type: 
  Country: None (occurrence: None)
  Receive Date: 20110318
  Receipt Date: 20091027
  Transmission Date: 20110831
  Serious: Yes (Other)
  Sender: FDA-Public Use
  Company Number: US-BAYER-200937688NA

PATIENT
  Sex: Male
  Weight: 69.841 kg

DRUGS (21)
  1. TRASYLOL [Suspect]
     Indication: PERICARDIAL OPERATION
     Dosage: 1 ML, 200 ML BOLUS, 50 ML DRIP
     Route: 042
     Dates: start: 20070518, end: 20070518
  2. PLASMA [Concomitant]
     Dosage: 800 ML, UNK
     Dates: start: 20070518
  3. CRYOPRECIPITATES [Concomitant]
     Dosage: 2 U, UNK
     Dates: start: 20070518
  4. TRASYLOL [Suspect]
     Indication: AORTIC VALVE REPLACEMENT
  5. COREG [Concomitant]
     Dosage: 25 MG, BID
     Route: 048
  6. UNKNOWN [Concomitant]
     Dosage: 1070 ML, UNK
     Dates: start: 20070518
  7. TOPROL-XL [Concomitant]
  8. VANCOMYCIN HCL [Concomitant]
  9. NITROGLYCERIN [Concomitant]
     Dosage: 2052.92 MCG PER INFUSION
  10. NOREPINEPHRINE BITARTRATE [Concomitant]
     Dosage: 697.99MCG PER INFUSION
  11. COREG [Concomitant]
     Dosage: 12.5 MG, BID
     Route: 048
     Dates: start: 20060101
  12. RED BLOOD CELLS [Concomitant]
     Dosage: 3 U, UNK
     Dates: start: 20070518
  13. TRASYLOL [Suspect]
     Indication: MITRAL VALVE REPAIR
  14. AMPICILLIN [Concomitant]
     Indication: ENTEROCOCCAL BACTERAEMIA
     Dosage: UNK
     Route: 042
     Dates: start: 20070127, end: 20070301
  15. GENTAMICIN [Concomitant]
     Indication: ENTEROCOCCAL BACTERAEMIA
     Dosage: UNK
     Route: 042
     Dates: start: 20070127, end: 20070301
  16. COZAAR [Concomitant]
  17. PROTAMINE SULFATE [Concomitant]
     Dosage: 350 MG, UNK
  18. PLATELETS [Concomitant]
     Dosage: 577 ML, UNK
     Dates: start: 20070518
  19. LASIX [Concomitant]
     Dosage: 40 MG, QD
     Route: 048
  20. HEPARIN [Concomitant]
  21. INSULIN [Concomitant]
     Dosage: 45 U, UNK

REACTIONS (7)
  - INJURY [None]
  - MENTAL DISORDER [None]
  - RENAL FAILURE ACUTE [None]
  - PAIN [None]
  - RENAL FAILURE [None]
  - UNEVALUABLE EVENT [None]
  - CEREBROVASCULAR ACCIDENT [None]
